FAERS Safety Report 18981397 (Version 2)
Quarter: 2021Q1

REPORT INFORMATION
  Report Type: Spontaneous
  Country: FR (occurrence: FR)
  Receive Date: 20210308
  Receipt Date: 20210312
  Transmission Date: 20210420
  Serious: Yes (Death, Hospitalization, Other)
  Sender: FDA-Public Use
  Company Number: FR-LUPIN PHARMACEUTICALS INC.-2021-02746

PATIENT
  Age: 73 Year
  Sex: Female

DRUGS (1)
  1. HYDROXYCHLOROQUINE [Suspect]
     Active Substance: HYDROXYCHLOROQUINE
     Indication: SYSTEMIC LUPUS ERYTHEMATOSUS
     Dosage: 400 MILLIGRAM, QD (ESTIMATED CUMULATIVE DOSE OF 1.7 TO 3.4 KG).
     Route: 065

REACTIONS (7)
  - Conduction disorder [Fatal]
  - Bundle branch block left [Fatal]
  - Pulmonary oedema [Unknown]
  - Atrioventricular block [Fatal]
  - Toxic cardiomyopathy [Fatal]
  - Cardiac failure chronic [Fatal]
  - Cardiac failure [Fatal]
